APPROVED DRUG PRODUCT: CLONIDINE HYDROCHLORIDE
Active Ingredient: CLONIDINE HYDROCHLORIDE
Strength: 0.1MG
Dosage Form/Route: TABLET, EXTENDED RELEASE;ORAL
Application: A209686 | Product #001 | TE Code: AB1
Applicant: AJANTA PHARMA LTD
Approved: Nov 20, 2017 | RLD: No | RS: Yes | Type: RX